FAERS Safety Report 10412189 (Version 2)
Quarter: 2014Q4

REPORT INFORMATION
  Report Type: Spontaneous
  Country: US (occurrence: None)
  Receive Date: 20140604
  Receipt Date: 20141010
  Transmission Date: 20150528
  Serious: Yes (Hospitalization, Other)
  Sender: FDA-Public Use
  Company Number: 163-POMAL-14044139

PATIENT
  Age: 50 Year
  Sex: Male

DRUGS (13)
  1. FENTANYL. [Concomitant]
     Active Substance: FENTANYL
  2. PROMETHAZINE [Concomitant]
     Active Substance: PROMETHAZINE\PROMETHAZINE HYDROCHLORIDE
  3. MYCELEX (CLOTRIMAZOLE) [Concomitant]
  4. FUROSEMIDE. [Concomitant]
     Active Substance: FUROSEMIDE
  5. MONTELUKAST SODIUM. [Concomitant]
     Active Substance: MONTELUKAST SODIUM
  6. THEOPHYLLINE ANHYDROUS (THEOPHYLLINE) [Concomitant]
  7. ACYCLOVIR (ACICLOVIR) [Concomitant]
  8. POTASSIUM CHLORIDE (ENTERIC-COATED TABLET) [Concomitant]
  9. CARAFATE (SUCRALFATE) [Concomitant]
  10. SYMBICORT (SYMBICORT TURBHALER ^DRACO^) [Concomitant]
  11. LYRICA [Concomitant]
     Active Substance: PREGABALIN
  12. MEGACE [Concomitant]
     Active Substance: MEGESTROL ACETATE
  13. POMALYST [Suspect]
     Active Substance: POMALIDOMIDE
     Indication: PLASMA CELL MYELOMA
     Dosage: 21 IN 28 D
     Route: 048
     Dates: start: 201405

REACTIONS (1)
  - Pneumonia [None]

NARRATIVE: CASE EVENT DATE: 20140403
